FAERS Safety Report 7304536-5 (Version None)
Quarter: 2011Q1

REPORT INFORMATION
  Report Type: 
  Country: None (occurrence: None)
  Receive Date: 20110221
  Receipt Date: 20100921
  Transmission Date: 20110831
  Serious: Yes (Other)
  Sender: FDA-Public Use
  Company Number: PHHY2010BR90124

PATIENT
  Age: 58 Year
  Sex: Male
  Weight: 100 kg

DRUGS (7)
  1. ATENOLOL [Concomitant]
     Dosage: 25 MG, BID
  2. VALSARTAN, AMLODIPINE [Suspect]
     Dosage: 160/5 MG
  3. METFORMIN [Suspect]
     Dosage: 850 MG, BID
  4. ATORVASTATIN [Concomitant]
     Dosage: 20 MG, UNK
  5. ASA [Concomitant]
  6. NPH INSULIN [Concomitant]
     Dosage: 35 IU, UNK
  7. GLIMEPIRIDE [Concomitant]
     Dosage: 4 MG, UNK

REACTIONS (6)
  - BUNDLE BRANCH BLOCK RIGHT [None]
  - ELECTROCARDIOGRAM QT INTERVAL ABNORMAL [None]
  - SINUS BRADYCARDIA [None]
  - ASTHENIA [None]
  - BLOOD CHOLESTEROL INCREASED [None]
  - LOW DENSITY LIPOPROTEIN INCREASED [None]
